FAERS Safety Report 9331598 (Version 1)
Quarter: 2013Q2

REPORT INFORMATION
  Report Type: Spontaneous
  Country: FR (occurrence: FR)
  Receive Date: 20130605
  Receipt Date: 20130605
  Transmission Date: 20140414
  Serious: Yes (Other)
  Sender: FDA-Public Use
  Company Number: FR-MERCK-1305FRA016420

PATIENT
  Age: 59 Year
  Sex: Female

DRUGS (4)
  1. JANUVIA [Suspect]
     Indication: DIABETES MELLITUS
     Dosage: 100 MG, QD
     Route: 048
     Dates: start: 20121223, end: 20121231
  2. KERLONE [Concomitant]
  3. ALDACTONE TABLETS [Concomitant]
     Dosage: UNK
  4. LEVOTHYROX [Concomitant]
     Dosage: UNK

REACTIONS (1)
  - Vitreous haemorrhage [Not Recovered/Not Resolved]
